FAERS Safety Report 24814470 (Version 1)
Quarter: 2025Q1

REPORT INFORMATION
  Report Type: Spontaneous
  Country: US (occurrence: None)
  Receive Date: 20250106
  Receipt Date: 20250106
  Transmission Date: 20250409
  Serious: Yes (Hospitalization)
  Sender: FDA-CTU
  Company Number: None

PATIENT
  Age: 44 Year
  Sex: Female

DRUGS (5)
  1. OPSYNVI [Suspect]
     Active Substance: MACITENTAN\TADALAFIL
     Indication: Pulmonary arterial hypertension
     Dosage: OTHER QUANTITY : 10/40MG;?FREQUENCY : DAILY;?
     Route: 048
     Dates: start: 202412
  2. SODIUM CHLORIDE [Concomitant]
     Active Substance: SODIUM CHLORIDE
  3. VELETRI SDV [Concomitant]
  4. OPSUMIT [Concomitant]
     Active Substance: MACITENTAN
  5. WINREVAIR [Concomitant]
     Active Substance: SOTATERCEPT-CSRK

REACTIONS (1)
  - Right ventricular failure [None]

NARRATIVE: CASE EVENT DATE: 20250103
